FAERS Safety Report 4421800-8 (Version None)
Quarter: 2004Q3

REPORT INFORMATION
  Report Type: 
  Country: None (occurrence: None)
  Receive Date: 20040806
  Receipt Date: 20040730
  Transmission Date: 20050211
  Serious: Yes (Other)
  Sender: FDA-Public Use
  Company Number: 2004-07-0683

PATIENT
  Age: 24 Year
  Sex: Female

DRUGS (1)
  1. TEMODAL [Suspect]
     Indication: ASTROCYTOMA
     Dosage: 300MGQDX5/35D ORAL
     Route: 048
     Dates: start: 20030601, end: 20040701

REACTIONS (2)
  - CYSTITIS HAEMORRHAGIC [None]
  - URINARY INCONTINENCE [None]
